FAERS Safety Report 5585549-0 (Version None)
Quarter: 2008Q1

REPORT INFORMATION
  Report Type: 
  Country: None (occurrence: None)
  Receive Date: 20080109
  Receipt Date: 20080103
  Transmission Date: 20080703
  Serious: Yes (Other)
  Sender: FDA-Public Use
  Company Number: B0360774A

PATIENT
  Age: 23 Year
  Sex: Female

DRUGS (7)
  1. PAROXETINE HYDROCHLORIDE [Suspect]
     Route: 065
     Dates: start: 19980429
  2. EFFEXOR [Concomitant]
     Dates: start: 20030801
  3. LORMETAZEPAM [Concomitant]
     Dates: start: 19990126
  4. LORAZEPAM [Concomitant]
     Dates: start: 20050318
  5. DIAZEPAM [Concomitant]
     Dates: start: 20050316
  6. GAMANIL [Concomitant]
     Dates: start: 20050401
  7. PROTHIADEN [Concomitant]
     Dates: start: 20050422

REACTIONS (25)
  - AGGRESSION [None]
  - AGITATION [None]
  - BALANCE DISORDER [None]
  - CONFUSIONAL STATE [None]
  - DEPRESSED MOOD [None]
  - DIARRHOEA [None]
  - DIZZINESS [None]
  - DYSKINESIA [None]
  - FATIGUE [None]
  - HAIR DISORDER [None]
  - HEAD INJURY [None]
  - HYPERHIDROSIS [None]
  - INFLUENZA [None]
  - LETHARGY [None]
  - MEMORY IMPAIRMENT [None]
  - PANIC ATTACK [None]
  - PARAESTHESIA [None]
  - SKIN INJURY [None]
  - SLEEP DISORDER [None]
  - SOMNOLENCE [None]
  - SUICIDAL BEHAVIOUR [None]
  - VERTIGO [None]
  - VISION BLURRED [None]
  - VOMITING [None]
  - WITHDRAWAL SYNDROME [None]
